FAERS Safety Report 7262735-5 (Version None)
Quarter: 2011Q1

REPORT INFORMATION
  Report Type: 
  Country: None (occurrence: None)
  Receive Date: 20110130
  Receipt Date: 20100927
  Transmission Date: 20110831
  Serious: No
  Sender: FDA-Public Use
  Company Number: US-ABBOTT-10P-163-0673893-00

PATIENT
  Age: 29 Year
  Sex: Female

DRUGS (3)
  1. LABATOLOL [Concomitant]
     Indication: PRODUCT USED FOR UNKNOWN INDICATION
  2. FEROSOL [Concomitant]
     Indication: PRODUCT USED FOR UNKNOWN INDICATION
     Dosage: DAILY
  3. HUMIRA [Suspect]
     Indication: PSORIATIC ARTHROPATHY
     Dates: start: 20100901

REACTIONS (1)
  - LACERATION [None]
